FAERS Safety Report 20443050 (Version 2)
Quarter: 2022Q1

REPORT INFORMATION
  Report Type: Spontaneous
  Country: FR (occurrence: FR)
  Receive Date: 20220208
  Receipt Date: 20220215
  Transmission Date: 20220424
  Serious: Yes (Death, Other)
  Sender: FDA-Public Use
  Company Number: None

PATIENT
  Sex: Male
  Weight: .8 kg

DRUGS (15)
  1. CLAVULANIC ACID [Suspect]
     Active Substance: CLAVULANIC ACID
     Indication: Appendicitis perforated
     Dosage: 275 MG, QD
     Route: 064
     Dates: start: 20210816, end: 20210817
  2. CEFOTAXIME SODIUM [Suspect]
     Active Substance: CEFOTAXIME SODIUM
     Indication: Appendicitis perforated
     Dosage: 3 G, QD
     Route: 064
     Dates: start: 20210810, end: 20210815
  3. SERTACONAZOLE NITRATE [Suspect]
     Active Substance: SERTACONAZOLE NITRATE
     Indication: Vulvovaginal mycotic infection
     Dosage: 1 DF
     Route: 064
     Dates: start: 20210804, end: 20210804
  4. ENOXAPARIN SODIUM [Suspect]
     Active Substance: ENOXAPARIN SODIUM
     Indication: Prophylaxis
     Dosage: 4000 IU, QD
     Route: 064
     Dates: start: 20210810, end: 20210816
  5. ACETAMINOPHEN [Suspect]
     Active Substance: ACETAMINOPHEN
     Indication: Pain
     Dosage: 4 G, QD
     Route: 064
     Dates: start: 20210808, end: 20210816
  6. METRONIDAZOLE [Suspect]
     Active Substance: METRONIDAZOLE
     Indication: Appendicitis perforated
     Dosage: 3 G, QD
     Route: 064
     Dates: start: 20210810, end: 20210815
  7. PANTOPRAZOLE [Suspect]
     Active Substance: PANTOPRAZOLE
     Indication: Gastrooesophageal reflux disease
     Dosage: 20 MG, QD
     Route: 064
     Dates: start: 20210815, end: 20210816
  8. AMOXICILLIN [Suspect]
     Active Substance: AMOXICILLIN
     Indication: Appendicitis perforated
     Dosage: 3 G, QD
     Route: 064
     Dates: start: 20210816, end: 20210817
  9. TRAMADOL HYDROCHLORIDE [Suspect]
     Active Substance: TRAMADOL HYDROCHLORIDE
     Indication: Pain
     Dosage: 100 MG, QD
     Route: 064
     Dates: start: 20210808, end: 20210816
  10. LEVOTHYROXINE SODIUM [Suspect]
     Active Substance: LEVOTHYROXINE SODIUM
     Indication: COVID-19 immunisation
     Dosage: 50 UG, QD
     Route: 064
     Dates: start: 20210505, end: 20211019
  11. PHLOROGLUCINOL [Suspect]
     Active Substance: PHLOROGLUCINOL
     Indication: Pain
     Dosage: 240 MG, QD
     Route: 064
     Dates: start: 20210808, end: 20210816
  12. NEFOPAM HYDROCHLORIDE [Suspect]
     Active Substance: NEFOPAM HYDROCHLORIDE
     Indication: Pain
     Dosage: 80 MG, QD
     Route: 064
     Dates: start: 20210810, end: 20210813
  13. ONDANSETRON HYDROCHLORIDE [Suspect]
     Active Substance: ONDANSETRON HYDROCHLORIDE
     Indication: Nausea
     Dosage: 16 MG, QD
     Route: 064
     Dates: start: 20210810, end: 20210815
  14. COMIRNATY [Suspect]
     Active Substance: TOZINAMERAN
     Indication: COVID-19 immunisation
     Dosage: 0.3 ML
     Route: 064
     Dates: start: 20210502, end: 20210502
  15. ROPIVACAINE HYDROCHLORIDE [Suspect]
     Active Substance: ROPIVACAINE HYDROCHLORIDE
     Indication: Anaesthesia
     Dosage: 20 ML
     Route: 064
     Dates: start: 20210810, end: 20210810

REACTIONS (1)
  - Urethral valves [Fatal]

NARRATIVE: CASE EVENT DATE: 20210929
